FAERS Safety Report 6918180-2 (Version None)
Quarter: 2010Q3

REPORT INFORMATION
  Report Type: 
  Country: None (occurrence: None)
  Receive Date: 20100806
  Receipt Date: 20100723
  Transmission Date: 20110219
  Serious: Yes (Other)
  Sender: FDA-Public Use
  Company Number: A-US2008-19093

PATIENT
  Age: 59 Year
  Sex: Female

DRUGS (3)
  1. TRACLEER [Suspect]
     Indication: PULMONARY HYPERTENSION
     Dosage: ORAL
     Route: 048
     Dates: start: 20070406
  2. COUMADIN [Concomitant]
  3. GLYBURIDE [Concomitant]

REACTIONS (6)
  - DIABETES MELLITUS [None]
  - HAEMORRHAGE [None]
  - HERPES ZOSTER [None]
  - LIMB INJURY [None]
  - OFF LABEL USE [None]
  - SKIN LACERATION [None]
